FAERS Safety Report 19680577 (Version 1)
Quarter: 2021Q3

REPORT INFORMATION
  Report Type: Spontaneous
  Country: TR (occurrence: TR)
  Receive Date: 20210810
  Receipt Date: 20210810
  Transmission Date: 20211014
  Serious: Yes (Other)
  Sender: FDA-Public Use
  Company Number: TR-AZURITY PHARMACEUTICALS, INC.-2021AZY00071

PATIENT
  Age: 19 Year
  Sex: Female

DRUGS (4)
  1. METHOTREXATE. [Suspect]
     Active Substance: METHOTREXATE
     Indication: OSTEOSARCOMA
     Dosage: 8 GRAM/M^2, TWO WEEKLY
     Route: 065
  2. FAVIPIRAVIR [Suspect]
     Active Substance: FAVIPIRAVIR
     Dosage: 2X600 MG ON THE 2ND DAY
     Route: 065
  3. FAVIPIRAVIR [Suspect]
     Active Substance: FAVIPIRAVIR
     Indication: PNEUMONIA VIRAL
     Dosage: 2X1600 MG ON THE 1ST DAY OF TREATMENT
     Route: 065
  4. FOLINIC ACID [Concomitant]
     Active Substance: LEUCOVORIN
     Route: 065

REACTIONS (2)
  - Drug interaction [Recovered/Resolved]
  - Hepatitis toxic [Recovered/Resolved]
